FAERS Safety Report 5334335-5 (Version None)
Quarter: 2007Q2

REPORT INFORMATION
  Report Type: 
  Country: None (occurrence: None)
  Receive Date: 20070525
  Receipt Date: 20060731
  Transmission Date: 20071010
  Serious: No
  Sender: FDA-Public Use
  Company Number: US-BRISTOL-MYERS SQUIBB COMPANY-13460894

PATIENT
  Age: 41 Year
  Sex: Female
  Weight: 54 kg

DRUGS (10)
  1. CYTOXAN [Suspect]
     Indication: BREAST CANCER
     Dates: start: 20051105, end: 20051105
  2. FLUOROURACIL [Suspect]
     Indication: BREAST CANCER
     Dates: start: 20051105, end: 20051105
  3. EPIRUBICIN [Suspect]
     Indication: BREAST CANCER
     Dates: start: 20051105, end: 20051105
  4. ALOXI [Concomitant]
     Indication: PROPHYLAXIS
     Dates: start: 20051105, end: 20051105
  5. LEVOTHYROXINE SODIUM [Concomitant]
     Indication: HYPOTHYROIDISM
  6. LUNESTA [Concomitant]
  7. ZOLOFT [Concomitant]
     Indication: DEPRESSION
  8. EMEND [Concomitant]
  9. DEXAMETHASONE 0.5MG TAB [Concomitant]
  10. ATIVAN [Concomitant]

REACTIONS (5)
  - DYSPEPSIA [None]
  - HEADACHE [None]
  - NAUSEA [None]
  - RETCHING [None]
  - VOMITING [None]
